FAERS Safety Report 8075752-2 (Version None)
Quarter: 2012Q1

REPORT INFORMATION
  Report Type: 
  Country: None (occurrence: None)
  Receive Date: 20120127
  Receipt Date: 20120124
  Transmission Date: 20120608
  Serious: No
  Sender: FDA-Public Use
  Company Number: US-TEVA-319368USA

PATIENT
  Sex: Female

DRUGS (4)
  1. CRYSELLE [Concomitant]
     Indication: CONTRACEPTION
  2. HYDROCODONE [Concomitant]
     Indication: PAIN
  3. AMOXICILLIN [Concomitant]
     Indication: TOOTH ABSCESS
  4. PLAN B ONE-STEP [Suspect]
     Indication: POST COITAL CONTRACEPTION
     Dosage: 1.5 MILLIGRAM;
     Route: 048
     Dates: start: 20120124, end: 20120124

REACTIONS (1)
  - MENSTRUATION IRREGULAR [None]
